FAERS Safety Report 14019371 (Version 1)
Quarter: 2017Q3

REPORT INFORMATION
  Report Type: Report from Study
  Country: US (occurrence: US)
  Receive Date: 20170928
  Receipt Date: 20170928
  Transmission Date: 20171128
  Serious: Yes (Other)
  Sender: FDA-Public Use
  Company Number: US-SUN PHARMACEUTICAL INDUSTRIES LTD-2017US-150686

PATIENT

DRUGS (2)
  1. GEMCITABINE [Suspect]
     Active Substance: GEMCITABINE\GEMCITABINE HYDROCHLORIDE
     Indication: BLADDER CANCER RECURRENT
     Dosage: 1 000 MG IN 50 ML OF STERILE WATER
     Route: 043
  2. MITOMYCIN C [Suspect]
     Active Substance: MITOMYCIN
     Indication: BLADDER CANCER RECURRENT
     Dosage: 40 MG IN 20 ML OF STERILE WATER
     Route: 043

REACTIONS (2)
  - Drug ineffective [Unknown]
  - Bladder cancer recurrent [Unknown]
